FAERS Safety Report 4558334-6 (Version None)
Quarter: 2005Q1

REPORT INFORMATION
  Report Type: 
  Country: None (occurrence: None)
  Receive Date: 20050121
  Receipt Date: 20040315
  Transmission Date: 20050727
  Serious: No
  Sender: FDA-Public Use
  Company Number: US-BRISTOL-MYERS SQUIBB COMPANY-12533980

PATIENT
  Age: 2 Year
  Sex: Male
  Weight: 16 kg

DRUGS (5)
  1. CEFZIL [Suspect]
     Indication: EAR INFECTION
     Route: 048
     Dates: start: 20040311, end: 20040320
  2. EPIPEN [Concomitant]
  3. ZYRTEC [Concomitant]
  4. BENADRYL [Concomitant]
  5. FLOVENT [Concomitant]

REACTIONS (3)
  - ERYTHEMA [None]
  - RASH [None]
  - WHEEZING [None]
